FAERS Safety Report 18343588 (Version 1)
Quarter: 2020Q4

REPORT INFORMATION
  Report Type: Spontaneous
  Country: IR (occurrence: IR)
  Receive Date: 20201005
  Receipt Date: 20201005
  Transmission Date: 20210113
  Serious: Yes (Death, Life-Threatening, Hospitalization)
  Sender: FDA-Public Use
  Company Number: IR-STRIDES ARCOLAB LIMITED-2020SP011586

PATIENT
  Age: 63 Year
  Sex: Female

DRUGS (5)
  1. MYCOPHENOLATE MOFETIL. [Suspect]
     Active Substance: MYCOPHENOLATE MOFETIL
     Dosage: REDUCED TO 500 MILLIGRAM, QD
     Route: 065
  2. CYCLOSPORINE. [Interacting]
     Active Substance: CYCLOSPORINE
     Indication: RENAL TRANSPLANT
     Dosage: 75 MILLIGRAM, BID
     Route: 065
  3. CYCLOSPORINE. [Interacting]
     Active Substance: CYCLOSPORINE
     Dosage: REDUCED TO 50 MILLIGRAM, BID
     Route: 065
  4. MYCOPHENOLATE MOFETIL. [Suspect]
     Active Substance: MYCOPHENOLATE MOFETIL
     Indication: RENAL TRANSPLANT
     Dosage: 500 MILLIGRAM, BID
     Route: 065
  5. KALETRA [Interacting]
     Active Substance: LOPINAVIR\RITONAVIR
     Indication: COVID-19 PNEUMONIA
     Dosage: 400MG/100MG, BID
     Route: 048

REACTIONS (13)
  - Oliguria [Unknown]
  - Proteinuria [Unknown]
  - Dyspnoea [Unknown]
  - Respiratory acidosis [Unknown]
  - Cough [Unknown]
  - Respiratory distress [Unknown]
  - Hypoxia [Unknown]
  - Drug interaction [Unknown]
  - Bloody discharge [Unknown]
  - Bradycardia [Unknown]
  - Nephropathy toxic [Unknown]
  - COVID-19 pneumonia [Unknown]
  - Cardio-respiratory arrest [Fatal]
